FAERS Safety Report 5857829-2 (Version None)
Quarter: 2008Q3

REPORT INFORMATION
  Report Type: 
  Country: None (occurrence: None)
  Receive Date: 20080826
  Receipt Date: 20080820
  Transmission Date: 20090109
  Serious: Yes (Other)
  Sender: FDA-Public Use
  Company Number: FR-AVENTIS-200812792FR

PATIENT
  Age: 53 Year
  Sex: Male
  Weight: 80 kg

DRUGS (5)
  1. LANTUS [Suspect]
     Route: 058
     Dates: start: 20070101
  2. ZOCOR [Concomitant]
     Route: 048
     Dates: start: 20050101, end: 20070101
  3. CRESTOR [Concomitant]
     Route: 048
     Dates: start: 20080101
  4. AMLODIPINE [Concomitant]
     Dates: start: 20080101
  5. NOVORAPID [Concomitant]
     Route: 058

REACTIONS (1)
  - RETINAL HAEMORRHAGE [None]
